FAERS Safety Report 12708599 (Version 1)
Quarter: 2016Q3

REPORT INFORMATION
  Report Type: Spontaneous
  Country: US (occurrence: US)
  Receive Date: 20160901
  Receipt Date: 20160901
  Transmission Date: 20161109
  Serious: Yes (Death, Other)
  Sender: FDA-Public Use
  Company Number: US-PFIZER INC-2016411172

PATIENT
  Sex: Female

DRUGS (5)
  1. MESTINON [Concomitant]
     Active Substance: PYRIDOSTIGMINE BROMIDE
     Dosage: 1/4 AND 1/2 TABLET EVERY 6 HOURS
  2. CALCIUM [Concomitant]
     Active Substance: CALCIUM
     Indication: VITAMIN SUPPLEMENTATION
     Dosage: 500 MG, DAILY
     Route: 048
  3. ETOMIDATE. [Suspect]
     Active Substance: ETOMIDATE
     Indication: ENDOTRACHEAL INTUBATION
     Dates: start: 20160728
  4. MESTINON [Concomitant]
     Active Substance: PYRIDOSTIGMINE BROMIDE
     Indication: MYASTHENIA GRAVIS
     Dosage: 60MG TABLET: 1/2 TABLET 30 MINUTES PRIOR TO MEALS OR IF THE PATIENT WAS GOING TO DO SOMETHING OR GO
  5. ERYTHROMYCIN. [Concomitant]
     Active Substance: ERYTHROMYCIN
     Indication: PYREXIA
     Dates: start: 20160725

REACTIONS (1)
  - Death [Fatal]

NARRATIVE: CASE EVENT DATE: 20160728
